FAERS Safety Report 8062220-7 (Version None)
Quarter: 2012Q1

REPORT INFORMATION
  Report Type: 
  Country: None (occurrence: None)
  Receive Date: 20120120
  Receipt Date: 20120120
  Transmission Date: 20120608
  Serious: No
  Sender: FDA-Public Use
  Company Number: None

PATIENT
  Sex: Male
  Weight: 110 kg

DRUGS (7)
  1. ASCORBIC ACID [Concomitant]
  2. LOSARTAN POTASSIUM [Concomitant]
  3. SYMBICORT [Concomitant]
  4. COMBIVENT [Concomitant]
  5. PRE MED BENADRIL [Concomitant]
  6. AMLODIPINE [Concomitant]
  7. ZEMAIRA [Suspect]
     Indication: ALPHA-1 ANTI-TRYPSIN DEFICIENCY
     Dosage: 60 MG/KG ONCE WEEKLY IV 041
     Route: 042
     Dates: start: 20111112

REACTIONS (5)
  - DIZZINESS [None]
  - PHARYNGEAL DISORDER [None]
  - INFUSION RELATED REACTION [None]
  - CHEST DISCOMFORT [None]
  - HEADACHE [None]
